FAERS Safety Report 7369609-X (Version None)
Quarter: 2011Q1

REPORT INFORMATION
  Report Type: 
  Country: None (occurrence: None)
  Receive Date: 20110323
  Receipt Date: 20110318
  Transmission Date: 20110831
  Serious: Yes (Hospitalization)
  Sender: FDA-Public Use
  Company Number: FR-MERCK-1103FRA00112

PATIENT
  Age: 65 Year
  Sex: Female

DRUGS (5)
  1. JANUVIA [Suspect]
     Indication: TYPE 2 DIABETES MELLITUS
     Route: 048
     Dates: start: 20090301
  2. METFORMIN PAMOATE [Concomitant]
     Indication: TYPE 2 DIABETES MELLITUS
     Route: 048
  3. ASPIRIN LYSINE [Concomitant]
     Route: 048
  4. ATENOLOL [Concomitant]
     Route: 048
  5. RAMIPRIL [Concomitant]
     Route: 048
     Dates: end: 20101101

REACTIONS (2)
  - HEPATIC CIRRHOSIS [None]
  - RECTOSIGMOID CANCER [None]
